FAERS Safety Report 21401359 (Version 2)
Quarter: 2022Q4

REPORT INFORMATION
  Report Type: Spontaneous
  Country: US (occurrence: US)
  Receive Date: 20221003
  Receipt Date: 20221122
  Transmission Date: 20230112
  Serious: Yes (Other)
  Sender: FDA-Public Use
  Company Number: US-JNJFOC-20220955360

PATIENT
  Age: 43 Year
  Sex: Female

DRUGS (13)
  1. ELMIRON [Suspect]
     Active Substance: PENTOSAN POLYSULFATE SODIUM
     Indication: Cystitis interstitial
     Route: 048
     Dates: start: 200005, end: 2014
  2. TIZANIDINE [Concomitant]
     Active Substance: TIZANIDINE
     Indication: Muscle spasms
     Dates: start: 2020
  3. POTASSIUM [Concomitant]
     Active Substance: POTASSIUM
     Indication: Blood potassium decreased
     Dates: start: 2000
  4. FLUTICASONE PROPIONATE [Concomitant]
     Active Substance: FLUTICASONE PROPIONATE
     Indication: Multiple allergies
     Dates: start: 2005
  5. DEXLANSOPRAZOLE [Concomitant]
     Active Substance: DEXLANSOPRAZOLE
     Indication: Gastrooesophageal reflux disease
     Dates: start: 2000
  6. CETIRIZINE [Concomitant]
     Active Substance: CETIRIZINE HYDROCHLORIDE
     Indication: Multiple allergies
     Dates: start: 2008
  7. VITAMIN D2 [Concomitant]
     Active Substance: ERGOCALCIFEROL
     Indication: Vitamin D deficiency
     Dates: start: 2012
  8. DICLOFENAC SODIUM [Concomitant]
     Active Substance: DICLOFENAC SODIUM
     Indication: Arthritis
     Dates: start: 2019
  9. ESCITALOPRAM [Concomitant]
     Active Substance: ESCITALOPRAM OXALATE
     Indication: Depression
     Dates: start: 2018
  10. PROMETHAZINE [Concomitant]
     Active Substance: PROMETHAZINE HYDROCHLORIDE
     Indication: Nausea
     Dates: start: 2012
  11. ATENOLOL [Concomitant]
     Active Substance: ATENOLOL
     Indication: Hypotension
     Dates: start: 2000
  12. ATENOLOL [Concomitant]
     Active Substance: ATENOLOL
     Indication: Heart rate increased
  13. HYDROXYZINE [Concomitant]
     Active Substance: HYDROXYZINE HYDROCHLORIDE
     Indication: Sleep disorder therapy
     Dates: start: 2019

REACTIONS (1)
  - Maculopathy [Unknown]

NARRATIVE: CASE EVENT DATE: 20210423
